FAERS Safety Report 24250902 (Version 1)
Quarter: 2024Q3

REPORT INFORMATION
  Report Type: Spontaneous
  Country: US (occurrence: US)
  Receive Date: 20240826
  Receipt Date: 20240826
  Transmission Date: 20241017
  Serious: Yes (Life-Threatening, Hospitalization)
  Sender: TEVA
  Company Number: US-TEVA-VS-3235705

PATIENT
  Age: 72 Year
  Sex: Female

DRUGS (3)
  1. METHYLPREDNISOLONE [Suspect]
     Active Substance: METHYLPREDNISOLONE
     Indication: Immune-mediated myocarditis
     Route: 042
  2. MILRINONE [Suspect]
     Active Substance: MILRINONE
     Indication: Immune-mediated myocarditis
     Route: 050
  3. PEMBROLIZUMAB [Suspect]
     Active Substance: PEMBROLIZUMAB
     Indication: Lung adenocarcinoma stage III
     Route: 065

REACTIONS (3)
  - Immune-mediated myocarditis [Recovering/Resolving]
  - Cardiogenic shock [Recovered/Resolved]
  - Drug ineffective [Unknown]
